FAERS Safety Report 24166755 (Version 1)
Quarter: 2024Q3

REPORT INFORMATION
  Report Type: Spontaneous
  Country: US (occurrence: US)
  Receive Date: 20240802
  Receipt Date: 20240802
  Transmission Date: 20241016
  Serious: Yes (Other)
  Sender: HIKMA
  Company Number: US-MLMSERVICE-20240712-PI131498-00128-1

PATIENT
  Age: 65 Year
  Sex: Female

DRUGS (2)
  1. CYCLOPHOSPHAMIDE [Suspect]
     Active Substance: CYCLOPHOSPHAMIDE
     Indication: Triple negative breast cancer
     Dosage: 2440 MILLIGRAM
     Route: 065
     Dates: start: 201911, end: 2019
  2. DOXORUBICIN [Suspect]
     Active Substance: DOXORUBICIN
     Indication: Triple negative breast cancer
     Dosage: 244 MILLIGRAM
     Route: 065
     Dates: start: 201911, end: 2019

REACTIONS (3)
  - Fatigue [Unknown]
  - Electrolyte imbalance [Unknown]
  - Left ventricular failure [Unknown]

NARRATIVE: CASE EVENT DATE: 20191101
